FAERS Safety Report 9929108 (Version 2)
Quarter: 2014Q3

REPORT INFORMATION
  Report Type: Spontaneous
  Country: IT (occurrence: IT)
  Receive Date: 20140227
  Receipt Date: 20140701
  Transmission Date: 20150326
  Serious: Yes (Death, Other)
  Sender: FDA-Public Use
  Company Number: IT-BRISTOL-MYERS SQUIBB COMPANY-20253977

PATIENT
  Age: 82 Year
  Sex: Male

DRUGS (1)
  1. COUMADIN [Suspect]
     Active Substance: WARFARIN SODIUM
     Dosage: 1DF=1 UNIT
     Route: 048
     Dates: start: 20110101, end: 20140216

REACTIONS (3)
  - Subdural haematoma [Unknown]
  - Cerebral haemorrhage [Fatal]
  - Head injury [Unknown]
